FAERS Safety Report 21054867 (Version 1)
Quarter: 2022Q3

REPORT INFORMATION
  Report Type: Spontaneous
  Country: US (occurrence: US)
  Receive Date: 20220707
  Receipt Date: 20220707
  Transmission Date: 20221027
  Serious: Yes (Hospitalization)
  Sender: FDA-Public Use
  Company Number: US-TEVA-2022-US-2052271

PATIENT
  Age: 16 Year
  Sex: Male

DRUGS (9)
  1. MITOXANTRONE [Suspect]
     Active Substance: MITOXANTRONE HYDROCHLORIDE
     Indication: Acute myeloid leukaemia refractory
     Dosage: INDUCTION THERAPY-II
     Route: 065
  2. BUSULFAN [Suspect]
     Active Substance: BUSULFAN
     Indication: Acute myeloid leukaemia refractory
     Dosage: CONDITIONING REGIMEN
     Route: 065
  3. CYCLOPHOSPHAMIDE [Suspect]
     Active Substance: CYCLOPHOSPHAMIDE
     Indication: Acute myeloid leukaemia refractory
     Dosage: CONDITIONING REGIMEN
     Route: 065
  4. CYTARABINE [Suspect]
     Active Substance: CYTARABINE
     Indication: Acute myeloid leukaemia refractory
     Dosage: INDUCTION THERAPY-I
     Route: 065
  5. CYTARABINE [Suspect]
     Active Substance: CYTARABINE
     Dosage: INDUCTION THERAPY-II
     Route: 065
  6. AZACITIDINE [Concomitant]
     Active Substance: AZACITIDINE
     Indication: Acute myeloid leukaemia refractory
     Route: 065
  7. LENALIDOMIDE [Concomitant]
     Active Substance: LENALIDOMIDE
     Indication: Acute myeloid leukaemia refractory
     Route: 065
  8. ETOPOSIDE [Concomitant]
     Active Substance: ETOPOSIDE
     Indication: Acute myeloid leukaemia refractory
     Dosage: INDUCTION THERAPY-I
     Route: 065
  9. DAUNORUBICIN [Concomitant]
     Active Substance: DAUNORUBICIN
     Indication: Acute myeloid leukaemia refractory
     Dosage: INDUCTION THERAPY-I
     Route: 065

REACTIONS (7)
  - Multiple organ dysfunction syndrome [Unknown]
  - Infection [Unknown]
  - Klebsiella infection [Unknown]
  - Pneumonia fungal [Unknown]
  - Febrile neutropenia [Unknown]
  - Urinary tract obstruction [Unknown]
  - Haemorrhage urinary tract [Unknown]
